FAERS Safety Report 14821905 (Version 2)
Quarter: 2018Q2

REPORT INFORMATION
  Report Type: Report from Study
  Country: MX (occurrence: MX)
  Receive Date: 20180427
  Receipt Date: 20180430
  Transmission Date: 20180711
  Serious: Yes (Death)
  Sender: FDA-Public Use
  Company Number: PHHY2018MX074356

PATIENT
  Sex: Female

DRUGS (4)
  1. PROPAM [Concomitant]
     Indication: PROPHYLAXIS
  2. EBIXA [Concomitant]
     Active Substance: MEMANTINE HYDROCHLORIDE
     Indication: SENILE DEMENTIA
     Dosage: 1 DF, Q12H
     Route: 065
     Dates: start: 2011
  3. EXELON PATCH [Suspect]
     Active Substance: RIVASTIGMINE
     Indication: SENILE DEMENTIA
     Dosage: 9.5 MG (PATCH 10 CM2), QD
     Route: 062
     Dates: start: 201705
  4. PROPAM [Concomitant]
     Indication: THYROID DISORDER
     Dosage: 0.25 DF, QD
     Route: 065
     Dates: start: 201709

REACTIONS (2)
  - Product use in unapproved indication [Unknown]
  - Cardiac disorder [Fatal]
